FAERS Safety Report 19142225 (Version 2)
Quarter: 2021Q2

REPORT INFORMATION
  Report Type: Spontaneous
  Country: US (occurrence: US)
  Receive Date: 20210416
  Receipt Date: 20210519
  Transmission Date: 20210717
  Serious: No
  Sender: FDA-Public Use
  Company Number: US-ASTRAZENECA-2021A273024

PATIENT
  Age: 12811 Day
  Sex: Female

DRUGS (1)
  1. BYDUREON BCISE [Suspect]
     Active Substance: EXENATIDE
     Indication: GLYCOSYLATED HAEMOGLOBIN ABNORMAL
     Route: 058
     Dates: start: 202103

REACTIONS (2)
  - Injection site pruritus [Unknown]
  - Device leakage [Unknown]

NARRATIVE: CASE EVENT DATE: 20210331
